FAERS Safety Report 9409614 (Version 1)
Quarter: 2013Q3

REPORT INFORMATION
  Report Type: Spontaneous
  Country: US (occurrence: US)
  Receive Date: 20130719
  Receipt Date: 20130719
  Transmission Date: 20140515
  Serious: Yes (Other)
  Sender: FDA-Public Use
  Company Number: PHEH2013US014752

PATIENT
  Sex: Female

DRUGS (1)
  1. GILENYA [Suspect]
     Route: 048

REACTIONS (4)
  - Monocytosis [Unknown]
  - Blood immunoglobulin G decreased [Unknown]
  - Wheezing [Unknown]
  - Chest pain [Unknown]
